FAERS Safety Report 25348676 (Version 1)
Quarter: 2025Q2

REPORT INFORMATION
  Report Type: Spontaneous
  Country: CH (occurrence: CH)
  Receive Date: 20250522
  Receipt Date: 20250522
  Transmission Date: 20250717
  Serious: Yes (Hospitalization, Disabling)
  Sender: PFIZER
  Company Number: None

PATIENT
  Age: 56 Year
  Sex: Male
  Weight: 44 kg

DRUGS (5)
  1. LORAZEPAM [Suspect]
     Active Substance: LORAZEPAM
     Dates: start: 20250310, end: 20250313
  2. LORAZEPAM [Suspect]
     Active Substance: LORAZEPAM
     Dates: start: 20250313, end: 20250313
  3. PREGABALIN [Suspect]
     Active Substance: PREGABALIN
     Dates: start: 20250313, end: 20250313
  4. MIRTAZAPINE [Suspect]
     Active Substance: MIRTAZAPINE
     Dates: start: 20250310, end: 20250310
  5. AMITRIPTYLINE [Suspect]
     Active Substance: AMITRIPTYLINE
     Dates: start: 20250310, end: 20250313

REACTIONS (1)
  - Accident [Unknown]

NARRATIVE: CASE EVENT DATE: 20250313
